FAERS Safety Report 6021066-1 (Version None)
Quarter: 2008Q4

REPORT INFORMATION
  Report Type: 
  Country: None (occurrence: None)
  Receive Date: 20081229
  Receipt Date: 20081215
  Transmission Date: 20090506
  Serious: Yes (Death)
  Sender: FDA-Public Use
  Company Number: US-PFIZER INC-2008153488

PATIENT
  Age: 69 Year
  Sex: Male

DRUGS (14)
  1. ATORVASTATIN CALCIUM [Suspect]
     Dosage: UNK
  2. AMLODIPINE BESYLATE [Suspect]
     Dosage: UNK
  3. PHENYTOIN AND PHENYTOIN SODIUM [Suspect]
     Dosage: UNK
  4. LORAZEPAM [Suspect]
     Dosage: UNK
  5. LISINOPRIL [Suspect]
     Dosage: UNK
  6. METOPROLOL [Suspect]
     Dosage: UNK
  7. CLONIDINE [Suspect]
     Dosage: UNK
  8. SALICYLATES [Suspect]
     Dosage: UNK
  9. ALBUTEROL [Suspect]
     Dosage: UNK
  10. RANITIDINE [Suspect]
     Dosage: UNK
  11. TIAGABINE [Suspect]
     Dosage: UNK
  12. DIURETICS [Suspect]
     Dosage: UNK
  13. CLOPIDOGREL [Suspect]
     Dosage: UNK
  14. EZETIMIBE [Suspect]
     Dosage: UNK

REACTIONS (1)
  - COMPLETED SUICIDE [None]
